FAERS Safety Report 24572289 (Version 2)
Quarter: 2025Q2

REPORT INFORMATION
  Report Type: Spontaneous
  Country: US (occurrence: US)
  Receive Date: 20241101
  Receipt Date: 20250531
  Transmission Date: 20250717
  Serious: Yes (Other)
  Sender: STEMLINE THERAPEUTICS
  Company Number: US-STEMLINE THERAPEUTICS, INC-2024-STML-US005782

PATIENT

DRUGS (2)
  1. ORSERDU [Suspect]
     Active Substance: ELACESTRANT
     Dosage: UNK, DAILY (FULL DOSE)
     Route: 065
     Dates: start: 20241001
  2. ORSERDU [Suspect]
     Active Substance: ELACESTRANT
     Dosage: 172 MG, DAILY
     Route: 065
     Dates: start: 202410

REACTIONS (3)
  - Thrombocytopenia [Unknown]
  - Mean cell volume increased [Unknown]
  - Rash [Recovered/Resolved]

NARRATIVE: CASE EVENT DATE: 20241001
